FAERS Safety Report 7081859-9 (Version None)
Quarter: 2010Q4

REPORT INFORMATION
  Report Type: 
  Country: None (occurrence: None)
  Receive Date: 20101103
  Receipt Date: 20101019
  Transmission Date: 20110411
  Serious: Yes (Other)
  Sender: FDA-Public Use
  Company Number: GB-AMGEN-QUU442646

PATIENT

DRUGS (15)
  1. ENBREL [Suspect]
     Dosage: UNK UNK, UNK
     Dates: start: 20100601
  2. PREDNISOLONE [Concomitant]
     Dosage: UNK UNK, UNK
  3. PREDNISOLONE [Concomitant]
     Dosage: UNKNOWN
  4. PARACETAMOL [Concomitant]
     Dosage: UNK UNK, UNK
  5. PARACETAMOL [Concomitant]
     Dosage: UNKNOWN
  6. CALCIUM [Concomitant]
     Dosage: UNK UNK, UNK
  7. CALCIUM [Concomitant]
     Dosage: UNKNOWN
  8. ARCOXIA [Concomitant]
     Dosage: UNK UNK, UNK
  9. ARCOXIA [Concomitant]
     Dosage: UNKNOWN
  10. FOLIC ACID [Concomitant]
     Dosage: UNK UNK, UNK
  11. FOLIC ACID [Concomitant]
     Dosage: UNKNOWN
  12. METHOTREXATE [Concomitant]
     Dosage: UNK UNK, UNK
  13. METHOTREXATE [Concomitant]
     Dosage: UNKNOWN
  14. ALENDRONIC ACID [Concomitant]
     Dosage: UNK UNK, UNK
  15. ALENDRONIC ACID [Concomitant]
     Dosage: UNKNOWN

REACTIONS (5)
  - CONDITION AGGRAVATED [None]
  - CONSTIPATION [None]
  - MALAISE [None]
  - PAIN [None]
  - VISUAL IMPAIRMENT [None]
